FAERS Safety Report 17449493 (Version 3)
Quarter: 2020Q3

REPORT INFORMATION
  Report Type: Spontaneous
  Country: US (occurrence: US)
  Receive Date: 20200224
  Receipt Date: 20200709
  Transmission Date: 20201102
  Serious: Yes (Hospitalization, Other)
  Sender: FDA-Public Use
  Company Number: US-GLAXOSMITHKLINE-US2020GSK031578

PATIENT
  Age: 42 Year
  Sex: Male

DRUGS (5)
  1. PRILOSEC OTC [Suspect]
     Active Substance: OMEPRAZOLE MAGNESIUM
     Dosage: UNK
     Route: 065
  2. PREVACID 24 HR [Suspect]
     Active Substance: LANSOPRAZOLE
     Indication: GASTROOESOPHAGEAL REFLUX DISEASE
     Dosage: 15 MG, QD
     Route: 048
     Dates: start: 2012, end: 2014
  3. PRILOSEC OTC [Suspect]
     Active Substance: OMEPRAZOLE MAGNESIUM
     Indication: GASTROOESOPHAGEAL REFLUX DISEASE
     Dosage: 20 MG, QD
     Route: 065
     Dates: start: 2011, end: 2014
  4. PRILOSEC [Suspect]
     Active Substance: OMEPRAZOLE MAGNESIUM
     Indication: DYSPEPSIA
     Dosage: 20 MG, QD
     Route: 065
     Dates: start: 2010, end: 2013
  5. PREVACID 24 HR [Suspect]
     Active Substance: LANSOPRAZOLE
     Dosage: UNK
     Route: 048

REACTIONS (16)
  - Chronic kidney disease [Unknown]
  - Ischaemic nephropathy [Unknown]
  - Renal disorder [Unknown]
  - Nephrosclerosis [Unknown]
  - Renal failure [Unknown]
  - Renal impairment [Unknown]
  - Dysuria [Unknown]
  - Renal artery stenosis [Unknown]
  - Renal artery arteriosclerosis [Unknown]
  - Renal disorder [Unknown]
  - Ureteral disorder [Unknown]
  - Essential hypertension [Unknown]
  - Renal atrophy [Unknown]
  - Renal artery occlusion [Unknown]
  - Acute kidney injury [Unknown]
  - Hypertensive nephropathy [Unknown]

NARRATIVE: CASE EVENT DATE: 2014
